FAERS Safety Report 9789853 (Version 1)
Quarter: 2013Q4

REPORT INFORMATION
  Report Type: Spontaneous
  Country: CH (occurrence: CH)
  Receive Date: 20131231
  Receipt Date: 20131231
  Transmission Date: 20140711
  Serious: Yes (Hospitalization, Other)
  Sender: FDA-Public Use
  Company Number: CH-ELI_LILLY_AND_COMPANY-CH201312008921

PATIENT
  Sex: 0
  Weight: 2.88 kg

DRUGS (6)
  1. CYMBALTA [Suspect]
     Indication: DEPRESSION
     Dosage: 30 MG, UNK
     Route: 064
  2. CYMBALTA [Suspect]
     Indication: DEPRESSION
     Dosage: 30 MG, UNK
     Route: 064
  3. XANAX [Suspect]
     Indication: DEPRESSION
     Dosage: 4 MG, QD
     Route: 064
  4. XANAX [Suspect]
     Indication: DEPRESSION
     Dosage: 4 MG, QD
     Route: 064
  5. XANAX [Suspect]
     Dosage: 2 MG, QD
     Route: 064
  6. XANAX [Suspect]
     Dosage: 2 MG, QD
     Route: 064

REACTIONS (3)
  - Neonatal tachypnoea [Unknown]
  - Pneumomediastinum [Recovering/Resolving]
  - Foetal exposure during pregnancy [Unknown]
